FAERS Safety Report 4018223 (Version 4)
Quarter: 2020Q1

REPORT INFORMATION
  Report Type: Spontaneous
  Country: DE (occurrence: DE)
  Receive Date: 20031028
  Receipt Date: 20200224
  Transmission Date: 20200409
  Serious: Yes (Hospitalization)
  Sender: FDA-Public Use
  Company Number: DE-ROCHE-348565

PATIENT
  Age: 51 Year
  Sex: Male
  Weight: 97 kg

DRUGS (6)
  1. COVERSUM [Concomitant]
     Active Substance: PERINDOPRIL
     Indication: HYPERTENSION
     Route: 048
     Dates: start: 2001
  2. GLUCOBAY [Concomitant]
     Active Substance: ACARBOSE
     Dosage: FORM STRENGTH=100 UNIT
     Route: 065
     Dates: start: 2001
  3. INSULIN RAPID [Concomitant]
     Active Substance: INSULIN NOS
     Indication: DIABETES MELLITUS
     Dosage: DOSING REGIMEN REPORTED AS 14-0-14 IU/DAY.
     Route: 065
     Dates: start: 1994
  4. CYNT [MOXONIDINE] [Concomitant]
     Dosage: FORM STRENGTH=.3 UNIT
     Route: 048
     Dates: start: 2001
  5. ROFERON-A [Suspect]
     Active Substance: INTERFERON ALFA-2A
     Indication: RENAL CELL CARCINOMA
     Route: 058
     Dates: start: 2001
  6. NORVASC [Concomitant]
     Active Substance: AMLODIPINE BESYLATE
     Indication: HYPERTENSION
     Route: 048
     Dates: start: 2001

REACTIONS (2)
  - Fall [Unknown]
  - Tendon rupture [Recovered/Resolved]

NARRATIVE: CASE EVENT DATE: 20030723
